FAERS Safety Report 4752887-0 (Version None)
Quarter: 2005Q3

REPORT INFORMATION
  Report Type: 
  Country: None (occurrence: None)
  Receive Date: 20050823
  Receipt Date: 20050809
  Transmission Date: 20060218
  Serious: Yes (Other)
  Sender: FDA-Public Use
  Company Number: US-2005-016149

PATIENT
  Age: 63 Year
  Sex: Female

DRUGS (24)
  1. CLIMARA [Suspect]
     Indication: MENOPAUSAL SYMPTOMS
     Dosage: TRANSDERMAL
     Route: 062
  2. PREMARIN [Suspect]
     Indication: MENOPAUSAL SYMPTOMS
     Dates: start: 19860101
  3. PROVERA [Suspect]
     Indication: MENOPAUSAL SYMPTOMS
     Dates: start: 19860101
  4. MEDROXYPROGESTERONE ACETATE [Suspect]
     Indication: MENOPAUSAL SYMPTOMS
     Dates: start: 19860101
  5. MEDROXYPROGESTERONE ACETATE [Suspect]
     Indication: MENOPAUSAL SYMPTOMS
  6. CYCRIN [Suspect]
     Indication: MENOPAUSAL SYMPTOMS
     Dates: start: 19860101
  7. AYGESTIN [Suspect]
     Indication: MENOPAUSAL SYMPTOMS
  8. PREMPHASE (PREMARIN;CYCRIN 14/14) [Suspect]
     Indication: MENOPAUSAL SYMPTOMS
  9. FEMHRT [Suspect]
     Indication: MENOPAUSAL SYMPTOMS
  10. VAGIFEM [Suspect]
     Indication: MENOPAUSAL SYMPTOMS
  11. ACTIVELLA [Suspect]
     Indication: MENOPAUSAL SYMPTOMS
  12. CENESTIN [Suspect]
     Indication: MENOPAUSAL SYMPTOMS
  13. ESTRADIOL [Suspect]
     Indication: MENOPAUSAL SYMPTOMS
  14. ESTRADERM [Suspect]
     Indication: MENOPAUSAL SYMPTOMS
  15. VIVELLE [Suspect]
     Indication: MENOPAUSAL SYMPTOMS
  16. COMBIPATCH [Suspect]
     Indication: MENOPAUSAL SYMPTOMS
  17. ESTRACE [Suspect]
     Indication: MENOPAUSAL SYMPTOMS
  18. ESTRATAB [Suspect]
     Indication: MENOPAUSAL SYMPTOMS
  19. OGEN [Suspect]
     Indication: MENOPAUSAL SYMPTOMS
  20. ESTROPIPATE [Suspect]
     Indication: MENOPAUSAL SYMPTOMS
  21. ORTHO TRI-CYCLEN [Suspect]
     Indication: MENOPAUSAL SYMPTOMS
  22. ORTHO-PREFEST(NORGESTIMATE, ESTRADIOL) [Suspect]
     Indication: MENOPAUSAL SYMPTOMS
  23. ESTROGENS [Suspect]
     Indication: MENOPAUSAL SYMPTOMS
  24. PROGESTERONE [Suspect]
     Indication: MENOPAUSAL SYMPTOMS

REACTIONS (8)
  - ANHEDONIA [None]
  - ANXIETY [None]
  - BREAST CANCER [None]
  - DEFORMITY [None]
  - INJURY [None]
  - OESTROGEN RECEPTOR ASSAY POSITIVE [None]
  - PAIN [None]
  - PROGESTERONE RECEPTOR ASSAY POSITIVE [None]
